FAERS Safety Report 11697105 (Version 2)
Quarter: 2015Q4

REPORT INFORMATION
  Report Type: Spontaneous
  Country: FR (occurrence: FR)
  Receive Date: 20151104
  Receipt Date: 20151113
  Transmission Date: 20160304
  Serious: Yes (Death, Other)
  Sender: FDA-Public Use
  Company Number: FR-009507513-1511FRA002143

PATIENT
  Age: 71 Year
  Sex: Male

DRUGS (21)
  1. TRIHEXYPHENIDYL HYDROCHLORIDE. [Suspect]
     Active Substance: TRIHEXYPHENIDYL HYDROCHLORIDE
     Dosage: 1 DF, QD
     Route: 048
  2. ZOPICLONE [Suspect]
     Active Substance: ZOPICLONE
     Dosage: 15 MG, QD
     Route: 048
  3. RIVOTRIL [Suspect]
     Active Substance: CLONAZEPAM
     Dosage: 4 MG, QD
     Route: 048
  4. VENTOLIN [Suspect]
     Active Substance: ALBUTEROL SULFATE
  5. DETURGYLONE [Concomitant]
     Active Substance: OXYMETAZOLINE HYDROCHLORIDE\PREDNISOLONE SODIUM PHOSPHATE
     Dosage: 1 DF, QD
  6. LASIX [Suspect]
     Active Substance: FUROSEMIDE
     Dosage: 40 MG, QD
     Route: 048
  7. NITROGLYCERIN. [Suspect]
     Active Substance: NITROGLYCERIN
     Dosage: 10 MG, QD
     Route: 048
  8. ZOCOR [Suspect]
     Active Substance: SIMVASTATIN
     Dosage: 20 MG, QD
     Route: 048
  9. OXYGEN. [Concomitant]
     Active Substance: OXYGEN
  10. PROPRANOLOL HYDROCHLORIDE. [Suspect]
     Active Substance: PROPRANOLOL HYDROCHLORIDE
     Dosage: 20 MG, QD
     Route: 048
  11. ACETAMINOPHEN. [Suspect]
     Active Substance: ACETAMINOPHEN
     Dosage: 100 MG, BID
     Route: 048
  12. ISOPTINE [Suspect]
     Active Substance: VERAPAMIL HYDROCHLORIDE
     Dosage: 240 MG, QD
     Route: 048
  13. URBANYL [Suspect]
     Active Substance: CLOBAZAM
     Dosage: 10 MG, TID
     Route: 048
  14. SEREVENT DISKUS [Suspect]
     Active Substance: SALMETEROL XINAFOATE
     Dosage: 1 DF, BID
  15. RAMIPRIL. [Suspect]
     Active Substance: RAMIPRIL
     Dosage: 5 MG, QD
     Route: 048
  16. CELEBREX [Suspect]
     Active Substance: CELECOXIB
  17. POLYETHYLENE GLYCOL 3350. [Suspect]
     Active Substance: POLYETHYLENE GLYCOL 3350
     Indication: PRODUCT USED FOR UNKNOWN INDICATION
     Dosage: 2 DF, QD
  18. OMEPRAZOLE. [Suspect]
     Active Substance: OMEPRAZOLE
     Dosage: 20 MG, QD
     Route: 048
  19. ASPEGIC [Suspect]
     Active Substance: ASPIRIN DL-LYSINE
     Dosage: 250 MG, QD
     Route: 048
  20. PIPAMPERONE [Suspect]
     Active Substance: PIPAMPERONE
     Dosage: 20 MG, QD
     Route: 048
  21. DIACEREIN [Suspect]
     Active Substance: DIACEREIN
     Dosage: 50 MG, BID
     Route: 048

REACTIONS (6)
  - Respiratory distress [Fatal]
  - Areflexia [Fatal]
  - Disease recurrence [Fatal]
  - Respiratory failure [Fatal]
  - Ischaemic stroke [Fatal]
  - Brain scan abnormal [Fatal]
